FAERS Safety Report 25084606 (Version 1)
Quarter: 2025Q1

REPORT INFORMATION
  Report Type: Spontaneous
  Country: CN (occurrence: CN)
  Receive Date: 20250317
  Receipt Date: 20250317
  Transmission Date: 20250408
  Serious: Yes (Hospitalization, Other)
  Sender: ASTELLAS
  Company Number: CN-ASTELLAS-2025-AER-013605

PATIENT
  Age: 58 Year
  Sex: Female
  Weight: 60 kg

DRUGS (12)
  1. XOSPATA [Suspect]
     Active Substance: GILTERITINIB
     Indication: Acute myeloid leukaemia
     Route: 048
     Dates: start: 20241120
  2. XOSPATA [Suspect]
     Active Substance: GILTERITINIB
     Dosage: CYCLE 3 OF CHEMOTHERAPY GILTERITINIB-VA REGIMEN
     Route: 048
     Dates: start: 20250107
  3. XOSPATA [Suspect]
     Active Substance: GILTERITINIB
     Dosage: FOURTH CYCLE OF CHEMOTHERAPY
     Route: 048
     Dates: start: 20250205, end: 20250216
  4. VIDAZA [Suspect]
     Active Substance: AZACITIDINE
     Indication: Acute myeloid leukaemia
     Route: 058
     Dates: start: 20241022
  5. VIDAZA [Suspect]
     Active Substance: AZACITIDINE
     Route: 058
     Dates: start: 20241120
  6. VIDAZA [Suspect]
     Active Substance: AZACITIDINE
     Route: 058
     Dates: start: 20250107
  7. VIDAZA [Suspect]
     Active Substance: AZACITIDINE
     Dosage: FOURTH CYCLE OF CHEMOTHERAPY (800 MG D1-7 IH)
     Route: 058
     Dates: start: 20250205, end: 20250211
  8. VENCLEXTA [Suspect]
     Active Substance: VENETOCLAX
     Indication: Acute myeloid leukaemia
     Route: 048
     Dates: start: 20241022
  9. VENCLEXTA [Suspect]
     Active Substance: VENETOCLAX
     Route: 048
     Dates: start: 20241120
  10. VENCLEXTA [Suspect]
     Active Substance: VENETOCLAX
     Route: 048
     Dates: start: 20250107
  11. VENCLEXTA [Suspect]
     Active Substance: VENETOCLAX
     Dosage: FOURTH CYCLE OF CHEMOTHERAPY WAS REDUCED IN DOSE (DOSE ADJUSTED ACCORDING TO HEMOGRAM)
     Route: 048
     Dates: start: 20250205, end: 20250216
  12. SODIUM CHLORIDE [Concomitant]
     Active Substance: SODIUM CHLORIDE
     Indication: Product used for unknown indication
     Route: 058
     Dates: start: 20250205, end: 20250211

REACTIONS (4)
  - Myelosuppression [Unknown]
  - Pseudomonal sepsis [Unknown]
  - Myelosuppression [Recovering/Resolving]
  - Pseudomonal sepsis [Unknown]

NARRATIVE: CASE EVENT DATE: 20241210
